FAERS Safety Report 24789201 (Version 1)
Quarter: 2024Q4

REPORT INFORMATION
  Report Type: Report from Study
  Country: KR (occurrence: KR)
  Receive Date: 20241230
  Receipt Date: 20241230
  Transmission Date: 20250115
  Serious: Yes (Other)
  Sender: NOVARTIS
  Company Number: KR-002147023-NVSC2024KR244444

PATIENT
  Age: 64 Year
  Sex: Male

DRUGS (7)
  1. BEOVU [Suspect]
     Active Substance: BROLUCIZUMAB-DBLL
     Indication: Neovascular age-related macular degeneration
     Dosage: 6 MG
     Route: 031
     Dates: start: 20241021, end: 20241021
  2. EXFORGE [Concomitant]
     Active Substance: AMLODIPINE BESYLATE\VALSARTAN
     Indication: Hypertension
     Dosage: UNK
     Route: 065
     Dates: start: 2005
  3. MOXISTA [Concomitant]
     Indication: Evidence based treatment
     Dosage: 1 DRP (3)
     Route: 065
     Dates: start: 20241021, end: 202410
  4. PARACAINE [Concomitant]
     Active Substance: PROPARACAINE HYDROCHLORIDE
     Indication: Anaesthesia procedure
     Dosage: UNK
     Route: 065
     Dates: start: 20241021, end: 20241021
  5. OFLOXACIN [Concomitant]
     Active Substance: OFLOXACIN
     Indication: Evidence based treatment
     Dosage: 1 DRP (1, OPHTHALMIC OINT)
     Route: 047
     Dates: start: 20241021, end: 20241021
  6. TORAMICIN [Concomitant]
     Indication: Evidence based treatment
     Dosage: 1 DRP (1, 5 ML, OPHTHALMIC SOLUTION)
     Route: 047
     Dates: start: 20241021, end: 20241021
  7. Tropherin [Concomitant]
     Indication: Mydriasis
     Dosage: UNK
     Route: 065
     Dates: start: 20241021, end: 20241021

REACTIONS (1)
  - Idiopathic orbital inflammation [Recovering/Resolving]

NARRATIVE: CASE EVENT DATE: 20241111
